FAERS Safety Report 9188130 (Version 6)
Quarter: 2014Q2

REPORT INFORMATION
  Report Type: Spontaneous
  Country: US (occurrence: US)
  Receive Date: 20130325
  Receipt Date: 20140507
  Transmission Date: 20141212
  Serious: Yes (Other)
  Sender: FDA-Public Use
  Company Number: US-009507513-1303USA011400

PATIENT
  Sex: Male
  Weight: 87.53 kg

DRUGS (7)
  1. PROPECIA [Suspect]
     Indication: ANDROGENETIC ALOPECIA
     Dosage: 1 MG, UNK
     Route: 048
     Dates: start: 19980601, end: 20130325
  2. PROPECIA [Suspect]
     Dosage: 0.5 MG, QD
     Route: 048
  3. FINASTERIDE [Suspect]
     Indication: ANDROGENETIC ALOPECIA
     Dosage: 5 MG, UNK
     Dates: start: 20110329, end: 201302
  4. PROSCAR [Suspect]
     Indication: PROPHYLAXIS
     Dosage: 5 MG, UNK
     Route: 048
     Dates: end: 20120726
  5. WELLBUTRIN [Concomitant]
     Indication: DEPRESSION
  6. EFFEXOR [Concomitant]
     Indication: DEPRESSION
  7. PROZAC [Concomitant]
     Indication: DEPRESSION

REACTIONS (37)
  - Papillary thyroid cancer [Unknown]
  - Thyroidectomy [Unknown]
  - Major depression [Unknown]
  - Cognitive disorder [Unknown]
  - Dysthymic disorder [Unknown]
  - Anxiety [Unknown]
  - Hypogonadism male [Unknown]
  - Resting tremor [Unknown]
  - Overdose [Unknown]
  - Primary hypothyroidism [Unknown]
  - Asthenia [Unknown]
  - Insomnia [Unknown]
  - Sleep apnoea syndrome [Unknown]
  - Nasal septal operation [Unknown]
  - Urinary retention [Unknown]
  - Intentional product misuse [Unknown]
  - Penile vascular disorder [Unknown]
  - Gastritis [Unknown]
  - Asthma [Unknown]
  - Neck pain [Not Recovered/Not Resolved]
  - Dyspepsia [Unknown]
  - Inappropriate schedule of drug administration [Unknown]
  - Wrong technique in drug usage process [Unknown]
  - Incorrect dose administered [Unknown]
  - Anxiety [Unknown]
  - Sexual dysfunction [Unknown]
  - Erectile dysfunction [Unknown]
  - Gynaecomastia [Unknown]
  - Drug ineffective [Unknown]
  - Drug ineffective [Unknown]
  - Libido decreased [Unknown]
  - Ejaculation disorder [Unknown]
  - Infertility male [Unknown]
  - Mycotic allergy [Unknown]
  - Soft tissue mass [Unknown]
  - Mammoplasty [Unknown]
  - Seasonal allergy [Unknown]
